FAERS Safety Report 5736680-8 (Version None)
Quarter: 2008Q2

REPORT INFORMATION
  Report Type: 
  Country: None (occurrence: None)
  Receive Date: 20080513
  Receipt Date: 20080505
  Transmission Date: 20081010
  Serious: Yes (Other)
  Sender: FDA-Public Use
  Company Number: US-WYE-H03959208

PATIENT
  Sex: Female
  Weight: 77.18 kg

DRUGS (2)
  1. PREMPRO [Suspect]
  2. CYCRIN [Suspect]

REACTIONS (1)
  - BREAST CANCER METASTATIC [None]
